FAERS Safety Report 4414189-1 (Version None)
Quarter: 2004Q3

REPORT INFORMATION
  Report Type: 
  Country: None (occurrence: None)
  Receive Date: 20040803
  Receipt Date: 20040517
  Transmission Date: 20050211
  Serious: Yes (Hospitalization, Other)
  Sender: FDA-Public Use
  Company Number: PHBS2004JP06669

PATIENT
  Age: 70 Year
  Sex: Female
  Weight: 48 kg

DRUGS (10)
  1. GLEEVEC [Suspect]
     Indication: CHRONIC MYELOID LEUKAEMIA
     Dosage: 400 MG, QD
     Route: 048
     Dates: start: 20030820, end: 20031006
  2. GLEEVEC [Suspect]
     Dosage: 200 MG/DAY
     Route: 048
     Dates: start: 20031101, end: 20031201
  3. GLEEVEC [Suspect]
     Dosage: 300 MG/D
     Route: 048
     Dates: start: 20031202, end: 20040125
  4. GLEEVEC [Suspect]
     Dosage: 400 MG/D
     Route: 048
     Dates: start: 20040126, end: 20040208
  5. GLEEVEC [Suspect]
     Dosage: 300 MG/D
     Route: 048
     Dates: start: 20040209
  6. PREDNISOLONE [Concomitant]
     Indication: RASH
     Dosage: 5 MG, BID
     Route: 048
     Dates: start: 20030101
  7. GLYCYRON [Concomitant]
     Indication: RASH
     Dosage: 2 DF, TID
     Route: 048
     Dates: start: 20031003
  8. POLARAMINE [Concomitant]
     Indication: RASH
     Dosage: 6 MG, BID
     Route: 048
     Dates: start: 20030101
  9. BEZATOL - SLOW RELEASE [Concomitant]
     Dosage: 400 MG/D
     Route: 048
     Dates: start: 19950501
  10. BERIZYM [Concomitant]
     Indication: DYSPEPSIA
     Dosage: 3 G/D
     Route: 048
     Dates: start: 20030801

REACTIONS (6)
  - FACE OEDEMA [None]
  - GLOMERULONEPHRITIS PROLIFERATIVE [None]
  - HYPERSENSITIVITY [None]
  - PROTEINURIA [None]
  - RASH [None]
  - RASH GENERALISED [None]
